FAERS Safety Report 12738004 (Version 2)
Quarter: 2016Q3

REPORT INFORMATION
  Report Type: Spontaneous
  Country: US (occurrence: US)
  Receive Date: 20160913
  Receipt Date: 20160928
  Transmission Date: 20161109
  Serious: Yes (Death, Other)
  Sender: FDA-Public Use
  Company Number: US-SA-2016SA167907

PATIENT
  Age: 76 Year
  Sex: Male

DRUGS (10)
  1. FLUDARABINE PHOSPHATE. [Suspect]
     Active Substance: FLUDARABINE PHOSPHATE
     Indication: CHRONIC LYMPHOCYTIC LEUKAEMIA
     Route: 065
  2. ACYCLOVIR. [Concomitant]
     Active Substance: ACYCLOVIR
     Route: 048
  3. ALEMTUZUMAB [Suspect]
     Active Substance: ALEMTUZUMAB
     Indication: CHRONIC LYMPHOCYTIC LEUKAEMIA
     Route: 065
  4. INSULIN [Concomitant]
     Active Substance: INSULIN NOS
  5. ROSUVASTATIN. [Concomitant]
     Active Substance: ROSUVASTATIN
  6. FOLIC ACID. [Concomitant]
     Active Substance: FOLIC ACID
  7. OMEPRAZOLE. [Concomitant]
     Active Substance: OMEPRAZOLE
  8. GABAPENTIN. [Concomitant]
     Active Substance: GABAPENTIN
  9. DOXEPIN [Concomitant]
     Active Substance: DOXEPIN
  10. VITAMIN B12 [Concomitant]
     Active Substance: CYANOCOBALAMIN
     Indication: SUPPLEMENTATION THERAPY

REACTIONS (14)
  - Purulent discharge [Fatal]
  - Hepatic mass [Fatal]
  - Dyspnoea [Fatal]
  - Metastatic neoplasm [Fatal]
  - Paraesthesia [Fatal]
  - Malignant pleural effusion [Fatal]
  - Neuroendocrine carcinoma of the skin [Fatal]
  - Breast mass [Fatal]
  - Mediastinal mass [Fatal]
  - Lymphopenia [Recovered/Resolved]
  - Skin mass [Fatal]
  - Arthralgia [Fatal]
  - Chest wall mass [Fatal]
  - Hypogammaglobulinaemia [Unknown]
